FAERS Safety Report 5067309-2 (Version None)
Quarter: 2006Q3

REPORT INFORMATION
  Report Type: 
  Country: None (occurrence: None)
  Receive Date: 20060714
  Receipt Date: 20060419
  Transmission Date: 20061208
  Serious: Yes (Hospitalization)
  Sender: FDA-Public Use
  Company Number: 2006SP001745

PATIENT
  Age: 50 Year
  Sex: Female
  Weight: 107.9561 kg

DRUGS (6)
  1. LUNESTA [Suspect]
     Indication: INSOMNIA
     Dosage: 3 MG; ORAL
     Route: 048
     Dates: start: 20060201
  2. NEURONTIN [Concomitant]
  3. MORPHINE [Concomitant]
  4. METFORMIN [Concomitant]
  5. GLUBYRIDE [Concomitant]
  6. LISINOPRIL [Concomitant]

REACTIONS (5)
  - DEHYDRATION [None]
  - DIARRHOEA [None]
  - DRUG EFFECT DECREASED [None]
  - INFLUENZA [None]
  - VOMITING [None]
